FAERS Safety Report 6834215-X (Version None)
Quarter: 2010Q3

REPORT INFORMATION
  Report Type: 
  Country: None (occurrence: None)
  Receive Date: 20100712
  Receipt Date: 20070619
  Transmission Date: 20110219
  Serious: Yes (Other)
  Sender: FDA-Public Use
  Company Number: PFIZER INC-2007030416

PATIENT
  Sex: Female
  Weight: 54.4 kg

DRUGS (6)
  1. CHANTIX [Suspect]
     Indication: SMOKING CESSATION THERAPY
     Dates: start: 20070402
  2. ZOLOFT [Concomitant]
  3. XANAX [Concomitant]
  4. DITROPAN [Concomitant]
  5. NEXIUM [Concomitant]
  6. VALTREX [Concomitant]

REACTIONS (4)
  - DYSPNOEA [None]
  - FLATULENCE [None]
  - NAUSEA [None]
  - TREMOR [None]
